FAERS Safety Report 5213225-2 (Version None)
Quarter: 2007Q1

REPORT INFORMATION
  Report Type: 
  Country: None (occurrence: None)
  Receive Date: 20070118
  Receipt Date: 20070118
  Transmission Date: 20070707
  Serious: Yes (Hospitalization)
  Sender: FDA-Public Use
  Company Number: None

PATIENT
  Sex: Male

DRUGS (9)
  1. TROPICAMIDE [Suspect]
     Indication: OPHTHALMOLOGICAL EXAMINATION
     Dates: start: 20061106, end: 20061106
  2. LISINOPRIL [Concomitant]
  3. FOLIC ACID [Concomitant]
  4. ASPIRIN [Concomitant]
  5. FERROUS SULFATE TAB [Concomitant]
  6. FELODIPINE [Concomitant]
  7. CITALOPRAM HYDROBROMIDE [Concomitant]
  8. PYRIDOXINE HCL [Concomitant]
  9. SIMVASTATIN [Concomitant]

REACTIONS (2)
  - CONFUSIONAL STATE [None]
  - DYSARTHRIA [None]
